FAERS Safety Report 9166075 (Version 2)
Quarter: 2014Q1

REPORT INFORMATION
  Report Type: Report from Study
  Country: CA (occurrence: CA)
  Receive Date: 20130315
  Receipt Date: 20140120
  Transmission Date: 20141002
  Serious: Yes (Other)
  Sender: FDA-Public Use
  Company Number: CA-JNJFOC-20130214002

PATIENT
  Age: 55 Year
  Sex: Male
  Weight: 44.45 kg

DRUGS (7)
  1. REMICADE [Suspect]
     Indication: CROHN^S DISEASE
     Route: 042
     Dates: start: 20130328
  2. REMICADE [Suspect]
     Indication: CROHN^S DISEASE
     Route: 042
     Dates: start: 20080922
  3. AZATHIOPRINE [Suspect]
     Indication: CROHN^S DISEASE
     Route: 048
  4. LORAZEPAM [Concomitant]
     Route: 065
  5. REACTINE [Concomitant]
     Indication: HYPERSENSITIVITY
     Route: 048
  6. CYCLOBENZAPRINE [Concomitant]
     Route: 048
  7. TRAMADOL [Concomitant]
     Indication: PAIN
     Route: 065

REACTIONS (3)
  - Tooth abscess [Recovered/Resolved]
  - Pancreatitis [Unknown]
  - Skin infection [Unknown]
